FAERS Safety Report 4897302-1 (Version None)
Quarter: 2005Q4

REPORT INFORMATION
  Report Type: 
  Country: None (occurrence: None)
  Receive Date: 20051223
  Receipt Date: 20051010
  Transmission Date: 20060501
  Serious: No
  Sender: FDA-Public Use
  Company Number: 05P-163-0313295-00

PATIENT
  Age: 48 Year
  Sex: Male
  Weight: 143.2 kg

DRUGS (6)
  1. HUMIRA [Suspect]
     Indication: ANKYLOSING SPONDYLITIS
     Dosage: 40 MG, 1 IN 2 WK, SUBCUTANEOUS
     Route: 058
     Dates: start: 20050829
  2. MYOCARDISINE [Concomitant]
  3. LANSOPRAZOLE [Concomitant]
  4. FOLIC ACID [Concomitant]
  5. ULTRASET [Concomitant]
  6. CRESTOR [Concomitant]

REACTIONS (1)
  - PROCEDURAL COMPLICATION [None]
